FAERS Safety Report 4474710-4 (Version None)
Quarter: 2004Q4

REPORT INFORMATION
  Report Type: 
  Country: None (occurrence: None)
  Receive Date: 20041012
  Receipt Date: 20040927
  Transmission Date: 20050328
  Serious: Yes (Death, Hospitalization, Disabling, Other)
  Sender: FDA-Public Use
  Company Number: 200410333BYL

PATIENT
  Age: 66 Year
  Sex: Female

DRUGS (7)
  1. CIPROXAN IV (CIPROFLOXACIN) [Suspect]
     Indication: PNEUMONIA
     Dosage: 100 MG, BID, INTRAVENOUS DRIP
     Route: 042
     Dates: start: 20040426, end: 20040503
  2. HABEKACIN (ARBEKACIN) [Suspect]
     Indication: PNEUMONIA
     Dosage: 0.3 G, BID, INTRAVENOUS DRIP
     Route: 041
     Dates: start: 20040426, end: 20040503
  3. OMEGACIN (BIAPENEM) [Suspect]
     Indication: PNEUMONIA
     Dosage: 0.3 G, BID INTRAVENOUS DRIP
     Route: 041
     Dates: start: 20040421, end: 20040426
  4. ZANTAC [Suspect]
     Dosage: 100 MG TOTAL, INTRAVENOUS DRIP
     Route: 041
     Dates: start: 20040428, end: 20040519
  5. MINOPEN [Concomitant]
  6. PAXIL [Concomitant]
  7. DEPAS [Concomitant]

REACTIONS (8)
  - AMYLOIDOSIS [None]
  - CONDITION AGGRAVATED [None]
  - GASTROINTESTINAL HAEMORRHAGE [None]
  - HAEMATOCRIT DECREASED [None]
  - HAEMOGLOBIN DECREASED [None]
  - PLATELET COUNT DECREASED [None]
  - RED BLOOD CELL COUNT DECREASED [None]
  - RENAL FAILURE CHRONIC [None]
